FAERS Safety Report 9241502 (Version 1)
Quarter: 2013Q1

REPORT INFORMATION
  Report Type: Spontaneous
  Country: US (occurrence: None)
  Receive Date: 20121121
  Receipt Date: 20121121
  Transmission Date: 20140127
  Serious: Yes (Hospitalization)
  Sender: FDA-Public Use
  Company Number: 12000021

PATIENT
  Age: 64 Year
  Sex: Male

DRUGS (7)
  1. JANTOVEN [Suspect]
     Indication: CEREBROVASCULAR ACCIDENT
     Route: 048
     Dates: start: 201112, end: 20120302
  2. MICARDIS (TELMISARTAN) [Concomitant]
  3. NEXIUM   /01479302/ [Concomitant]
  4. ACTOS   /01460201/  (PIOGLITAZONE) [Concomitant]
  5. CARDIZEM   /00489701/ (DILTIAZEM) [Concomitant]
  6. LANTUS (INSULIN GLARGINE) [Concomitant]
  7. BYETTA (EXENATIDE) [Concomitant]

REACTIONS (3)
  - International normalised ratio increased [None]
  - Injection site haematoma [None]
  - Injection site haemorrhage [None]
